FAERS Safety Report 17550108 (Version 2)
Quarter: 2020Q2

REPORT INFORMATION
  Report Type: Spontaneous
  Country: DE (occurrence: DE)
  Receive Date: 20200317
  Receipt Date: 20200526
  Transmission Date: 20200713
  Serious: Yes (Other)
  Sender: FDA-Public Use
  Company Number: DE-PFIZER INC-2020109554

PATIENT
  Age: 30 Year
  Sex: Female
  Weight: 51 kg

DRUGS (2)
  1. CYTOTEC [Suspect]
     Active Substance: MISOPROSTOL
     Indication: LABOUR INDUCTION
     Dosage: 50 UG
     Route: 048
     Dates: start: 20121005, end: 20121005
  2. CYTOTEC [Suspect]
     Active Substance: MISOPROSTOL
     Dosage: 250 UG (100 UG AT 10 A.M., 100 UG AT 3 P.M., 50 UG AT 7 P.M.)
     Route: 048
     Dates: start: 20121006, end: 20121006

REACTIONS (3)
  - Product use in unapproved indication [Unknown]
  - Premature separation of placenta [Recovered/Resolved]
  - Off label use [Unknown]

NARRATIVE: CASE EVENT DATE: 20121005
